FAERS Safety Report 4612909-4 (Version None)
Quarter: 2005Q1

REPORT INFORMATION
  Report Type: 
  Country: None (occurrence: None)
  Receive Date: 20050318
  Receipt Date: 20050310
  Transmission Date: 20050727
  Serious: Yes (Life-Threatening)
  Sender: FDA-Public Use
  Company Number: FR-GLAXOSMITHKLINE-B0374806A

PATIENT
  Age: 38 Year
  Sex: Male

DRUGS (4)
  1. AUGMENTIN '125' [Suspect]
     Indication: SINUSITIS
     Route: 048
     Dates: start: 20040116
  2. MUCOMYST [Suspect]
     Indication: SINUSITIS
     Route: 048
     Dates: start: 20040116
  3. PIVALONE [Suspect]
     Indication: SINUSITIS
     Route: 065
     Dates: start: 20040116
  4. ASPEGIC 1000 [Suspect]
     Indication: SINUSITIS
     Route: 048
     Dates: start: 20040116

REACTIONS (6)
  - BLOOD PRESSURE DECREASED [None]
  - DRUG INEFFECTIVE [None]
  - LOSS OF CONSCIOUSNESS [None]
  - PULSE ABNORMAL [None]
  - PULSE PRESSURE DECREASED [None]
  - URTICARIA GENERALISED [None]
